FAERS Safety Report 12262697 (Version 2)
Quarter: 2016Q2

REPORT INFORMATION
  Report Type: Spontaneous
  Country: DE (occurrence: DE)
  Receive Date: 20160413
  Receipt Date: 20160506
  Transmission Date: 20160815
  Serious: Yes (Death, Hospitalization, Other)
  Sender: FDA-Public Use
  Company Number: DE-PFIZER INC-2016141084

PATIENT
  Age: 58 Year
  Sex: Female

DRUGS (4)
  1. L-THYROXIN [Concomitant]
     Active Substance: LEVOTHYROXINE SODIUM
     Dosage: 75 UG, 1X/DAY
  2. XALKORI [Suspect]
     Active Substance: CRIZOTINIB
     Indication: LUNG ADENOCARCINOMA STAGE IV
     Dosage: UNK
     Dates: start: 20160128, end: 2016
  3. PANTOPRAZOL [Concomitant]
     Active Substance: PANTOPRAZOLE SODIUM
     Dosage: 40 MG, 1X/DAY
  4. NOVALGIN [Concomitant]
     Active Substance: METAMIZOLE SODIUM
     Dosage: 500 MG, 4X2 TABLETS

REACTIONS (14)
  - Abdominal pain upper [Unknown]
  - Death [Fatal]
  - Hepatic failure [Unknown]
  - Hypokalaemia [Unknown]
  - Ascites [Unknown]
  - Renal failure [Unknown]
  - Electrolyte imbalance [Unknown]
  - Weight decreased [Unknown]
  - Flatulence [Unknown]
  - Hyponatraemia [Unknown]
  - Infection [Unknown]
  - Productive cough [Unknown]
  - Protein deficiency [Unknown]
  - Constipation [Unknown]

NARRATIVE: CASE EVENT DATE: 20160328
